FAERS Safety Report 7959898-2 (Version None)
Quarter: 2011Q4

REPORT INFORMATION
  Report Type: 
  Country: None (occurrence: None)
  Receive Date: 20111206
  Receipt Date: 20111202
  Transmission Date: 20120403
  Serious: Yes (Death, Other)
  Sender: FDA-Public Use
  Company Number: PHHY2011AT105763

PATIENT
  Age: 73 Year
  Sex: Male

DRUGS (4)
  1. FUROSEMIDE [Suspect]
     Dosage: 30 MG, QD
  2. SPIRONOLACTONE [Suspect]
     Dosage: 100 MG, QD
  3. AMILORIDE HCL AND HYDROCHLOROTHIAZIDE [Suspect]
     Dosage: 50/5MG ONCE DAILY
  4. ENALAPRIL MALEATE [Suspect]
     Dosage: 10 MG, QD

REACTIONS (4)
  - DEATH [None]
  - CARDIAC ARREST [None]
  - HYPERKALAEMIA [None]
  - RENAL INJURY [None]
